FAERS Safety Report 6815037-2 (Version None)
Quarter: 2010Q2

REPORT INFORMATION
  Report Type: 
  Country: None (occurrence: None)
  Receive Date: 20100629
  Receipt Date: 20100618
  Transmission Date: 20101027
  Serious: Yes (Hospitalization)
  Sender: FDA-Public Use
  Company Number: 7008633

PATIENT
  Age: 27 Year
  Sex: Female

DRUGS (4)
  1. REBIF [Suspect]
     Indication: SECONDARY PROGRESSIVE MULTIPLE SCLEROSIS
     Dosage: 44 MCG, 3 IN 1 WK, SUBCUTANEOUS
     Route: 058
     Dates: start: 20060701
  2. GABAPENTIN [Concomitant]
  3. OMEPRAZOLE [Concomitant]
  4. AMITRIPTYLINE HYDROCHLORIDE [Concomitant]

REACTIONS (7)
  - ANAEMIA [None]
  - BALANCE DISORDER [None]
  - DIPLOPIA [None]
  - INFECTION [None]
  - MUSCLE SPASTICITY [None]
  - PAIN [None]
  - URINARY TRACT INFECTION [None]
